FAERS Safety Report 14967763 (Version 1)
Quarter: 2018Q2

REPORT INFORMATION
  Report Type: Spontaneous
  Country: US (occurrence: US)
  Receive Date: 20180604
  Receipt Date: 20180604
  Transmission Date: 20180711
  Serious: No
  Sender: FDA-Public Use
  Company Number: US-ASTRAZENECA-2018SE62050

PATIENT
  Sex: Female

DRUGS (3)
  1. BEVESPI AEROSPHERE [Suspect]
     Active Substance: FORMOTEROL FUMARATE\GLYCOPYRROLATE
     Indication: ASTHMA
     Dosage: 9MCG/4.8MCG, 2 INHALATIONS TWICE A DAY
     Route: 055
     Dates: start: 201801
  2. ASMANEX [Concomitant]
     Active Substance: MOMETASONE FUROATE
     Indication: STEROID THERAPY
     Route: 055
     Dates: start: 2015
  3. BEVESPI AEROSPHERE [Suspect]
     Active Substance: FORMOTEROL FUMARATE\GLYCOPYRROLATE
     Indication: CHRONIC OBSTRUCTIVE PULMONARY DISEASE
     Dosage: 9MCG/4.8MCG, 2 INHALATIONS TWICE A DAY
     Route: 055
     Dates: start: 201801

REACTIONS (3)
  - Weight decreased [Unknown]
  - Intentional device misuse [Unknown]
  - Device failure [Unknown]
